FAERS Safety Report 18001692 (Version 1)
Quarter: 2020Q3

REPORT INFORMATION
  Report Type: Report from Study
  Country: CO (occurrence: CO)
  Receive Date: 20200709
  Receipt Date: 20200709
  Transmission Date: 20201103
  Serious: No
  Sender: FDA-Public Use
  Company Number: CO-TOLMAR, INC.-20CO020580

PATIENT
  Age: 87 Year
  Sex: Male

DRUGS (2)
  1. OMEPRAZOLE. [Concomitant]
     Active Substance: OMEPRAZOLE
     Indication: PRODUCT USED FOR UNKNOWN INDICATION
  2. ELIGARD [Suspect]
     Active Substance: LEUPROLIDE ACETATE
     Indication: PROSTATE CANCER
     Dosage: 45 MG
     Route: 058
     Dates: start: 20191210

REACTIONS (4)
  - Hyperhidrosis [Not Recovered/Not Resolved]
  - Enuresis [Not Recovered/Not Resolved]
  - Dizziness [Recovered/Resolved]
  - Hot flush [Not Recovered/Not Resolved]

NARRATIVE: CASE EVENT DATE: 20200118
